FAERS Safety Report 8188839-0 (Version None)
Quarter: 2012Q1

REPORT INFORMATION
  Report Type: 
  Country: None (occurrence: None)
  Receive Date: 20120306
  Receipt Date: 20120228
  Transmission Date: 20120608
  Serious: Yes (Hospitalization, Other)
  Sender: FDA-Public Use
  Company Number: AU-B.I. PHARMACEUTICALS,INC./RIDGEFIELD-2012-AU-00450AU

PATIENT
  Sex: Male

DRUGS (1)
  1. PRADAXA [Suspect]
     Dates: start: 20110101, end: 20111001

REACTIONS (3)
  - HAEMORRHAGE [None]
  - GASTROINTESTINAL CARCINOMA [None]
  - CONSCIOUSNESS FLUCTUATING [None]
